FAERS Safety Report 9495516 (Version 1)
Quarter: 2013Q3

REPORT INFORMATION
  Report Type: Spontaneous
  Country: US (occurrence: US)
  Receive Date: 20130903
  Receipt Date: 20130903
  Transmission Date: 20140515
  Serious: No
  Sender: FDA-Public Use
  Company Number: US-SANOFI-AVENTIS-2013SA048186

PATIENT
  Age: 8 Year
  Sex: Male
  Weight: 45 kg

DRUGS (2)
  1. ALLEGRA [Suspect]
     Indication: MULTIPLE ALLERGIES
     Dosage: TAKEN FROM - 2 DAYS AGO
     Route: 065
  2. SINGULAIR [Suspect]
     Route: 065

REACTIONS (1)
  - Drug ineffective [Unknown]
